FAERS Safety Report 22307069 (Version 2)
Quarter: 2023Q2

REPORT INFORMATION
  Report Type: Spontaneous
  Country: US (occurrence: None)
  Receive Date: 20230511
  Receipt Date: 20230518
  Transmission Date: 20230722
  Serious: Yes (Other)
  Sender: FDA-Public Use
  Company Number: US-ROCHE-3346791

PATIENT
  Sex: Female
  Weight: 93.07 kg

DRUGS (1)
  1. OCREVUS [Suspect]
     Active Substance: OCRELIZUMAB
     Indication: Primary progressive multiple sclerosis
     Dosage: 300MG IN 250ML OF NORMAL SALINE
     Route: 042
     Dates: start: 202304

REACTIONS (5)
  - Multiple sclerosis relapse [Unknown]
  - Wrong technique in product usage process [Unknown]
  - Off label use [Unknown]
  - Incorrect drug administration rate [Unknown]
  - Device related thrombosis [Unknown]
